FAERS Safety Report 22774807 (Version 6)
Quarter: 2023Q4

REPORT INFORMATION
  Report Type: Spontaneous
  Country: US (occurrence: US)
  Receive Date: 20230802
  Receipt Date: 20231019
  Transmission Date: 20240109
  Serious: Yes (Death, Hospitalization, Other)
  Sender: FDA-Public Use
  Company Number: US-BRISTOL-MYERS SQUIBB COMPANY-2023-107978

PATIENT
  Age: 50 Year
  Sex: Male

DRUGS (23)
  1. REVLIMID [Suspect]
     Active Substance: LENALIDOMIDE
     Indication: Plasma cell myeloma
     Dosage: 21 DAY ON 7 DAY OFF
     Route: 048
     Dates: start: 20230619, end: 20230706
  2. ACETAMINOPHEN [Concomitant]
     Active Substance: ACETAMINOPHEN
     Indication: Pain
     Dosage: 325MG*2
     Route: 048
     Dates: end: 20230706
  3. ASPIRIN [Concomitant]
     Active Substance: ASPIRIN
     Indication: Coronary artery disease
     Route: 048
     Dates: end: 20230706
  4. ATORVASTATIN [Concomitant]
     Active Substance: ATORVASTATIN
     Indication: Coronary artery disease
     Route: 048
     Dates: end: 20230706
  5. BENZTROPINE [Concomitant]
     Active Substance: BENZTROPINE
     Indication: Schizophrenia
     Route: 048
     Dates: end: 20230706
  6. CARVEDILOL [Concomitant]
     Active Substance: CARVEDILOL
     Indication: Coronary artery disease
     Route: 048
     Dates: end: 20230706
  7. DEXAMETHASONE [Concomitant]
     Active Substance: DEXAMETHASONE
     Indication: Plasma cell myeloma
     Dosage: 6 MG*5 Q MONDAY
     Route: 048
     Dates: end: 20230706
  8. CHOLECALCIFEROL [Concomitant]
     Active Substance: CHOLECALCIFEROL
     Indication: Plasma cell myeloma
     Route: 048
     Dates: end: 20230706
  9. CALCIUM CARBONATE [Concomitant]
     Active Substance: CALCIUM CARBONATE
     Indication: Gastrooesophageal reflux disease
     Route: 048
     Dates: end: 20230706
  10. DOCUSATE [Concomitant]
     Active Substance: DOCUSATE
     Indication: Constipation
     Route: 048
     Dates: end: 20230706
  11. FENTANYL [Concomitant]
     Active Substance: FENTANYL
     Indication: Pain
     Route: 062
     Dates: end: 20230629
  12. FERROUS SULFATE [Concomitant]
     Active Substance: FERROUS SULFATE
     Indication: Anaemia
     Route: 048
     Dates: end: 20230706
  13. FOLIC ACID [Concomitant]
     Active Substance: FOLIC ACID
     Indication: Anaemia
     Route: 048
     Dates: end: 20230706
  14. HALOPERIDOL DC [Concomitant]
     Indication: Schizophrenia
     Route: 030
     Dates: end: 20230706
  15. LACTULOSE [Concomitant]
     Active Substance: LACTULOSE
     Indication: Constipation
     Route: 048
     Dates: end: 20230706
  16. LISINOPRIL [Concomitant]
     Active Substance: LISINOPRIL
     Indication: Coronary artery disease
     Route: 048
     Dates: end: 20230706
  17. LISINOPRIL [Concomitant]
     Active Substance: LISINOPRIL
     Indication: Hypertension
  18. MORPHINE [Concomitant]
     Active Substance: MORPHINE
     Indication: Pain
     Dosage: MORPHINE IP 4-6 HRS
     Route: 048
     Dates: start: 20230515, end: 20230706
  19. MORPHINE [Concomitant]
     Active Substance: MORPHINE
     Dosage: MORPHINE ER
     Route: 048
     Dates: start: 20230629, end: 20230706
  20. ONDANSETRON [Concomitant]
     Active Substance: ONDANSETRON
     Indication: Nausea
     Route: 048
     Dates: end: 20230706
  21. PANTOPRAZOLE [Concomitant]
     Active Substance: PANTOPRAZOLE
     Indication: Gastrooesophageal reflux disease
     Route: 048
     Dates: start: 20230629, end: 20230706
  22. SPIRONOLACTONE [Concomitant]
     Active Substance: SPIRONOLACTONE
     Indication: Cardiomyopathy
     Route: 048
     Dates: start: 20230618, end: 20230706
  23. VENLAFAXINE [Concomitant]
     Active Substance: VENLAFAXINE HYDROCHLORIDE
     Indication: Product used for unknown indication
     Route: 048
     Dates: start: 20221230, end: 20230706

REACTIONS (2)
  - Cardiac arrest [Fatal]
  - Respiratory failure [Fatal]
